FAERS Safety Report 8407417-9 (Version None)
Quarter: 2012Q2

REPORT INFORMATION
  Report Type: 
  Country: None (occurrence: None)
  Receive Date: 20120604
  Receipt Date: 20120524
  Transmission Date: 20120825
  Serious: Yes (Other)
  Sender: FDA-Public Use
  Company Number: US-ASTRAZENECA-2012SE34028

PATIENT
  Age: 81 Year
  Sex: Female

DRUGS (1)
  1. ARIMIDEX [Suspect]
     Route: 048

REACTIONS (7)
  - SWOLLEN TONGUE [None]
  - DRUG HYPERSENSITIVITY [None]
  - MACULAR DEGENERATION [None]
  - GLAUCOMA [None]
  - LUNG INFECTION [None]
  - EXPOSURE TO CHEMICAL POLLUTION [None]
  - LUNG NEOPLASM [None]
